FAERS Safety Report 11640157 (Version 2)
Quarter: 2015Q4

REPORT INFORMATION
  Report Type: Report from Study
  Country: AT (occurrence: AT)
  Receive Date: 20151019
  Receipt Date: 20151103
  Transmission Date: 20160304
  Serious: Yes (Hospitalization)
  Sender: FDA-Public Use
  Company Number: AT-ROCHE-1647643

PATIENT
  Age: 51 Year
  Sex: Female

DRUGS (9)
  1. SUMATRIPTAN. [Concomitant]
     Active Substance: SUMATRIPTAN
  2. PANTOLOC [Concomitant]
     Active Substance: PANTOPRAZOLE SODIUM
  3. VENLAFAXIN [Concomitant]
     Active Substance: VENLAFAXINE HYDROCHLORIDE
  4. APREDNISLON [Concomitant]
     Active Substance: PREDNISOLONE
  5. OLEOVIT [Concomitant]
  6. TOPAMAX [Concomitant]
     Active Substance: TOPIRAMATE
  7. RESOCHIN [Concomitant]
     Active Substance: NIFEDIPINE
  8. RITUXIMAB [Suspect]
     Active Substance: RITUXIMAB
     Indication: SYSTEMIC LUPUS ERYTHEMATOSUS
     Route: 065
     Dates: start: 201308
  9. DEFLAMAT [Concomitant]
     Active Substance: DICLOFENAC SODIUM

REACTIONS (1)
  - Cholangitis [Recovered/Resolved]

NARRATIVE: CASE EVENT DATE: 201507
